FAERS Safety Report 11472054 (Version 2)
Quarter: 2018Q2

REPORT INFORMATION
  Report Type: Spontaneous
  Country: US (occurrence: US)
  Receive Date: 20150908
  Receipt Date: 20180607
  Transmission Date: 20180711
  Serious: Yes (Hospitalization, Other)
  Sender: FDA-Public Use
  Company Number: US-PROCTER_AND_GAMBLE-CIO15054073

PATIENT
  Age: 54 Year
  Sex: Female

DRUGS (1)
  1. VICKS VAPORUB [Suspect]
     Active Substance: CAMPHOR (SYNTHETIC)\EUCALYPTUS OIL\MENTHOL
     Dosage: DAILY INGESTION OF CLOSE TO A FULL 3.53 OUNCE JAR FOR YEARS / 3 50 GRAM CONTAINERS WEEKLY
     Route: 048

REACTIONS (27)
  - Cardiac failure [Recovered/Resolved]
  - Pulmonary congestion [Recovered/Resolved]
  - Vomiting [Recovered/Resolved]
  - Mental status changes [Recovered/Resolved]
  - Exposure via ingestion [Unknown]
  - Dyspnoea [Recovered/Resolved]
  - Blood alkaline phosphatase increased [Recovered/Resolved]
  - Metabolic acidosis [Recovered/Resolved]
  - Dehydration [Recovered/Resolved]
  - Multiple organ dysfunction syndrome [Recovered/Resolved]
  - Renal failure [Recovered/Resolved]
  - Nausea [Recovered/Resolved]
  - Poisoning [Recovered/Resolved]
  - Respiratory acidosis [Recovered/Resolved]
  - Hypoxia [Recovered/Resolved]
  - Blood creatinine increased [Recovered/Resolved]
  - Hepatic enzyme increased [Recovered/Resolved]
  - Blood bicarbonate decreased [Recovered/Resolved]
  - Aspartate aminotransferase increased [Recovered/Resolved]
  - Ventricular tachycardia [Recovered/Resolved]
  - Confusional state [Recovered/Resolved]
  - Condition aggravated [Recovered/Resolved]
  - Incorrect route of drug administration [Unknown]
  - Base excess decreased [Recovered/Resolved]
  - Anion gap increased [Recovered/Resolved]
  - Ventricular fibrillation [Recovered/Resolved]
  - Blood pH decreased [Recovered/Resolved]
